FAERS Safety Report 8985194 (Version 1)
Quarter: 2012Q4

REPORT INFORMATION
  Report Type: 
  Country: BR (occurrence: BR)
  Receive Date: 20121226
  Receipt Date: 20121226
  Transmission Date: 20130627
  Serious: Yes (Other)
  Sender: FDA-Public Use
  Company Number: BR-PFIZER INC-2012326163

PATIENT
  Age: 71 Year
  Sex: Female
  Weight: 80 kg

DRUGS (3)
  1. CITALOR [Suspect]
     Indication: CHOLESTEROL
     Dosage: 10 mg, 1x/day
     Route: 048
     Dates: start: 20041221
  2. CITALOR [Suspect]
     Dosage: halft tablet (5 mg), unspecified frequency
     Route: 048
  3. OSCAL [Concomitant]
     Indication: OSTEOPOROSIS
     Dosage: UNK

REACTIONS (1)
  - Blood pressure increased [Unknown]
